FAERS Safety Report 7989622-9 (Version None)
Quarter: 2011Q4

REPORT INFORMATION
  Report Type: 
  Country: None (occurrence: None)
  Receive Date: 20111219
  Receipt Date: 20111206
  Transmission Date: 20120403
  Serious: Yes (Other)
  Sender: FDA-Public Use
  Company Number: US-UCBSA-045210

PATIENT
  Age: 43 Year
  Sex: Female

DRUGS (4)
  1. XYREM [Suspect]
     Indication: CATAPLEXY
     Dosage: NIGHTLY
     Route: 048
     Dates: start: 20111102, end: 20111101
  2. PROPRANOLOL [Suspect]
     Indication: HYPERTENSION
     Dosage: TOTAL DAILY DOSE 240 MG
     Route: 048
     Dates: start: 20110501
  3. METADATE CD [Suspect]
     Indication: NARCOLEPSY
     Dosage: TOTAL DAILY DOSE OF 30 MG
  4. XYREM [Suspect]
     Indication: NARCOLEPSY
     Dosage: NIGHTLY
     Route: 048
     Dates: start: 20111102, end: 20111101

REACTIONS (7)
  - DYSPNOEA [None]
  - MUSCLE TWITCHING [None]
  - VOMITING [None]
  - MUSCLE SPASTICITY [None]
  - SOMNOLENCE [None]
  - FEELING ABNORMAL [None]
  - ALTERED STATE OF CONSCIOUSNESS [None]
